FAERS Safety Report 8306224-5 (Version None)
Quarter: 2012Q2

REPORT INFORMATION
  Report Type: 
  Country: None (occurrence: None)
  Receive Date: 20120423
  Receipt Date: 20120411
  Transmission Date: 20120825
  Serious: Yes (Hospitalization, Disabling)
  Sender: FDA-Public Use
  Company Number: US-ROCHE-1057274

PATIENT
  Age: 73 Year
  Sex: Male

DRUGS (1)
  1. RANIBIZUMAB [Suspect]
     Indication: DIABETIC RETINAL OEDEMA
     Dosage: DATE OF LAST DOSE ON 28 NOV 2011, LAST DOSE: 0.05 ML,
     Route: 050

REACTIONS (2)
  - PNEUMONIA [None]
  - SEPSIS [None]
